FAERS Safety Report 8309691-6 (Version None)
Quarter: 2012Q2

REPORT INFORMATION
  Report Type: 
  Country: None (occurrence: None)
  Receive Date: 20120423
  Receipt Date: 20120412
  Transmission Date: 20120825
  Serious: Yes (Hospitalization, Other)
  Sender: FDA-Public Use
  Company Number: AUR-APL-2012-01729

PATIENT
  Age: 91 Year
  Sex: Female

DRUGS (9)
  1. BUPRENORPHINE [Suspect]
     Indication: PAIN
     Dosage: (35 MCG,1 HR),TRANSDERMAL
     Route: 062
  2. ENALAPRIL MALEATE [Suspect]
     Indication: HYPERTENSION
     Dosage: 20 MG (20 MG,1 IN 1 D),ORAL
     Route: 048
  3. TRAMADOL HCL [Suspect]
     Indication: PRODUCT USED FOR UNKNOWN INDICATION
     Dosage: (AS REQUIRED)
  4. LANSOPRAZOLE [Concomitant]
  5. ASPIRIN [Concomitant]
  6. LEVOFLOXACIN [Suspect]
     Indication: BACTERIAL INFECTION
     Dosage: (500 MG,1 D),ORAL
     Route: 048
  7. GLYBURIDE AND METFORMIN HYDROCHLORIDE [Suspect]
     Indication: TYPE 2 DIABETES MELLITUS
     Dosage: 400MG/2.5MG (3 IN 1 D),ORAL
     Route: 048
  8. NADROPARIN (NADROPARIN) [Suspect]
     Indication: ISCHAEMIC STROKE
     Dosage: (3800 IU,1 D),SUBCUTANEOUS
     Route: 058
  9. ENALAPRIL/HYDROCHLOROTHIAZIDE (LOTRIAL D /06276001/) [Suspect]
     Indication: HYPERTENSION
     Dosage: 20MG/12.5 MG (1 IN 1 D),ORAL
     Route: 048

REACTIONS (4)
  - COMA [None]
  - HYPOGLYCAEMIA [None]
  - ARTERIAL THROMBOSIS LIMB [None]
  - DRUG INTERACTION [None]
